FAERS Safety Report 4685984-9 (Version None)
Quarter: 2005Q2

REPORT INFORMATION
  Report Type: 
  Country: None (occurrence: None)
  Receive Date: 20050607
  Receipt Date: 20050607
  Transmission Date: 20051028
  Serious: Yes (Hospitalization)
  Sender: FDA-Public Use
  Company Number: None

PATIENT
  Age: 60 Year
  Sex: Male

DRUGS (1)
  1. LINEZOLID      600MG [Suspect]
     Dosage: 600MG   BID   ORAL
     Route: 048

REACTIONS (1)
  - ANAEMIA [None]
